FAERS Safety Report 8396633-0 (Version None)
Quarter: 2012Q2

REPORT INFORMATION
  Report Type: 
  Country: None (occurrence: None)
  Receive Date: 20120530
  Receipt Date: 20120525
  Transmission Date: 20120825
  Serious: No
  Sender: FDA-Public Use
  Company Number: US-PFIZER INC-2012127286

PATIENT
  Sex: Male
  Weight: 73 kg

DRUGS (5)
  1. LIPITOR [Suspect]
     Indication: BLOOD CHOLESTEROL INCREASED
     Dosage: 10 MG, DAILY
     Dates: start: 20080101
  2. CENTRUM SILVER MEN'S 50+ [Suspect]
     Dosage: UNK
  3. NORVASC [Concomitant]
     Indication: HYPERTENSION
     Dosage: 5 MG, DAILY
  4. LIPITOR [Suspect]
     Dosage: 5 MG, DAILY
  5. CENTRUM SILVER MEN'S 50+ [Suspect]
     Dosage: UNK
     Dates: start: 20110101

REACTIONS (1)
  - BLOOD GLUCOSE INCREASED [None]
